FAERS Safety Report 9374891 (Version 1)
Quarter: 2013Q2

REPORT INFORMATION
  Report Type: Spontaneous
  Country: US (occurrence: US)
  Receive Date: 20130628
  Receipt Date: 20130628
  Transmission Date: 20140414
  Serious: No
  Sender: FDA-Public Use
  Company Number: US-009507513-1306USA003348

PATIENT
  Age: 18 Year
  Sex: Female
  Weight: 80.36 kg

DRUGS (2)
  1. NEXPLANON [Suspect]
     Indication: CONTRACEPTION
     Dosage: 3 YEAR
     Route: 059
     Dates: start: 20130528, end: 20130529
  2. NEXPLANON [Suspect]
     Dosage: UNK
     Route: 059
     Dates: start: 20130529

REACTIONS (6)
  - Device difficult to use [Recovered/Resolved]
  - Product quality issue [Unknown]
  - Device dislocation [Recovered/Resolved]
  - Device expulsion [Recovered/Resolved]
  - Application site discomfort [Recovered/Resolved]
  - Implant site discharge [Recovered/Resolved]
